FAERS Safety Report 23664039 (Version 1)
Quarter: 2024Q1

REPORT INFORMATION
  Report Type: Report from Study
  Country: CA (occurrence: CA)
  Receive Date: 20240322
  Receipt Date: 20240322
  Transmission Date: 20240410
  Serious: Yes (Other)
  Sender: FDA-Public Use
  Company Number: CA-SAMSUNG BIOEPIS-SB-2024-08226

PATIENT
  Sex: Male
  Weight: 117 kg

DRUGS (1)
  1. RENFLEXIS [Suspect]
     Active Substance: INFLIXIMAB-ABDA
     Indication: Colitis ulcerative
     Route: 042

REACTIONS (4)
  - Tympanic membrane perforation [Not Recovered/Not Resolved]
  - Ear infection [Not Recovered/Not Resolved]
  - Infection [Not Recovered/Not Resolved]
  - Product use issue [Unknown]
